FAERS Safety Report 24652001 (Version 2)
Quarter: 2024Q4

REPORT INFORMATION
  Report Type: Spontaneous
  Country: US (occurrence: US)
  Receive Date: 20241122
  Receipt Date: 20241213
  Transmission Date: 20250115
  Serious: Yes (Other)
  Sender: DR REDDYS
  Company Number: US-DRL-USA-SPO/USA/24/0016857

PATIENT
  Sex: Female

DRUGS (1)
  1. METOPROLOL SUCCINATE [Suspect]
     Active Substance: METOPROLOL SUCCINATE
     Indication: Product used for unknown indication
     Route: 048

REACTIONS (7)
  - Atrial fibrillation [Unknown]
  - Blood pressure increased [Unknown]
  - Heart rate increased [Unknown]
  - Drug ineffective [Unknown]
  - Product delivery mechanism issue [Unknown]
  - Extra dose administered [Unknown]
  - Product storage error [Unknown]
